FAERS Safety Report 16430586 (Version 1)
Quarter: 2019Q2

REPORT INFORMATION
  Report Type: Report from Study
  Country: DE (occurrence: DE)
  Receive Date: 20190614
  Receipt Date: 20190614
  Transmission Date: 20190711
  Serious: Yes (Death, Life-Threatening)
  Sender: FDA-Public Use
  Company Number: DE-ACCORD-132848

PATIENT
  Age: 45 Year
  Sex: Male
  Weight: 88 kg

DRUGS (54)
  1. NEUPOGEN [Suspect]
     Active Substance: FILGRASTIM
     Indication: BONE MARROW TRANSPLANT
     Route: 042
     Dates: start: 19981127, end: 19981130
  2. DOPAMINE [Suspect]
     Active Substance: DOPAMINE\DOPAMINE HYDROCHLORIDE
     Indication: HYPOTENSION
     Route: 042
     Dates: start: 19981119, end: 19990101
  3. CLONT [Concomitant]
     Indication: INFECTION
     Route: 042
  4. MORPHINE [Concomitant]
     Active Substance: MORPHINE
     Indication: SEDATION
     Route: 042
     Dates: start: 19981111, end: 19981123
  5. METHOTREXATE. [Concomitant]
     Active Substance: METHOTREXATE
     Indication: BONE MARROW TRANSPLANT
     Route: 042
     Dates: start: 19981111, end: 19981111
  6. GENTAMICIN. [Suspect]
     Active Substance: GENTAMICIN
     Indication: CONJUNCTIVITIS
     Dosage: 1 DROP PER EYE TWICE DAILY.
     Route: 047
     Dates: start: 19981129, end: 19981129
  7. KONAKION [Suspect]
     Active Substance: PHYTONADIONE
     Indication: COAGULOPATHY
     Dosage: IRREGULAR/UNKNOWN DOSING.,ALSO TAKEN 10 MG TO 12-NOV-1998
     Route: 042
     Dates: start: 19981123, end: 19981207
  8. URBASON SOLUBILE [Suspect]
     Active Substance: METHYLPREDNISOLONE SODIUM SUCCINATE
     Indication: GRAFT VERSUS HOST DISEASE
     Route: 042
     Dates: start: 19981121, end: 19990101
  9. GLUCOSE/GLUCOSE MONOHYDRATE/GLUCOSE OXIDASE [Concomitant]
     Indication: PARENTERAL NUTRITION
     Dosage: 10, 40 OR 70% SOLUTIONS.
     Route: 042
  10. SODIUM BICARBONATE. [Concomitant]
     Active Substance: SODIUM BICARBONATE
     Indication: ACIDOSIS
     Dosage: INTERMITTENT THERAPY.
     Route: 042
     Dates: start: 19981201, end: 19981206
  11. FUROSEMIDE. [Suspect]
     Active Substance: FUROSEMIDE
     Indication: OEDEMA
     Dosage: ALSO TAKEN FROM 08-DEC-1998 AND FROM 13-OCT-1998 TO 29-OCT-1998, FROM 02-DEC-1998 TO 03-DEC-1998
     Route: 042
     Dates: start: 19981205, end: 19981205
  12. VOMEX A [Suspect]
     Active Substance: DIMENHYDRINATE
     Indication: NAUSEA
     Route: 042
     Dates: start: 19981118, end: 19981130
  13. TAVOR (LORAZEPAM) [Suspect]
     Active Substance: LORAZEPAM
     Indication: SEDATION
     Route: 042
     Dates: end: 19981125
  14. BACTRIM [Suspect]
     Active Substance: SULFAMETHOXAZOLE\TRIMETHOPRIM
     Indication: INFECTION
     Dosage: ALSO TAKEN FROM 13-NOV-1998 TO 20-NOV-1998, FROM 27-NOV-1998 TO 29-NOV-1998
     Route: 042
     Dates: start: 19981204, end: 19981206
  15. VANCOMYCIN [Concomitant]
     Active Substance: VANCOMYCIN
     Indication: INFECTION
     Dosage: INTERMITTENT THERAPY.
     Route: 042
     Dates: start: 19981111
  16. DOLANTIN [Concomitant]
     Active Substance: MEPERIDINE
     Indication: SEDATION
     Dosage: INTERMITTENT THERAPY.
     Route: 042
     Dates: start: 19981111, end: 19981121
  17. SANDIMMUN [Concomitant]
     Active Substance: CYCLOSPORINE
     Indication: BONE MARROW TRANSPLANT
     Route: 042
  18. CALCIUM [Concomitant]
     Active Substance: CALCIUM
     Indication: BLOOD CALCIUM DECREASED
     Route: 042
  19. TAVEGIL [Concomitant]
     Active Substance: CLEMASTINE FUMARATE
     Indication: GRAFT VERSUS HOST DISEASE
     Route: 042
     Dates: start: 19981118, end: 19981121
  20. PREDNISOLONE. [Suspect]
     Active Substance: PREDNISOLONE
     Indication: CONJUNCTIVITIS
     Dosage: ALSO TAKEN FROM 04-DEC-1998 TO 04-DEC-1998
     Route: 061
     Dates: start: 19981207, end: 19990101
  21. MAGNESIUM VERLA [Concomitant]
     Active Substance: MAGNESIUM
     Indication: BLOOD MAGNESIUM DECREASED
     Dosage: INTERMITTENT THERAPY.
     Route: 042
     Dates: end: 19981202
  22. SOLU-DECORTIN H [Concomitant]
     Indication: GRAFT VERSUS HOST DISEASE
     Route: 042
     Dates: start: 19981119, end: 19981121
  23. GRANOCYTE [Concomitant]
     Active Substance: LENOGRASTIM
     Indication: BONE MARROW TRANSPLANT
     Route: 042
     Dates: end: 19981128
  24. RESONIUM A [Suspect]
     Active Substance: SODIUM POLYSTYRENE SULFONATE
     Indication: HYPERKALAEMIA
     Route: 048
     Dates: start: 19981129, end: 19981129
  25. PROSTAVASIN [Concomitant]
     Active Substance: ALPROSTADIL ALFADEX
     Indication: CARDIOVASCULAR DISORDER
     Route: 042
     Dates: start: 19981111, end: 19981119
  26. SODIUM CHLORIDE. [Concomitant]
     Active Substance: SODIUM CHLORIDE
     Indication: HYPONATRAEMIA
     Route: 042
     Dates: start: 19981113
  27. SOLUVIT [Concomitant]
     Active Substance: VITAMINS
     Indication: PARENTERAL NUTRITION
     Route: 042
  28. ACC [Concomitant]
     Active Substance: ACETYLCYSTEINE
     Indication: UNEVALUABLE EVENT
     Route: 042
     Dates: start: 19981117, end: 19981119
  29. AQUAPHOR [Concomitant]
     Active Substance: PETROLATUM
     Indication: OEDEMA
     Route: 048
     Dates: start: 19981120, end: 19981120
  30. PENTAGLOBIN [Concomitant]
     Active Substance: HUMAN IMMUNOGLOBULIN G
     Indication: BONE MARROW TRANSPLANT
     Dosage: GIVEN ON 15, 19, 26 NOV ONLY.
     Route: 042
     Dates: start: 19981115, end: 19981126
  31. PEPDUL [Concomitant]
     Active Substance: FAMOTIDINE
     Indication: PROPHYLAXIS
     Route: 042
     Dates: end: 19981110
  32. REMERGIL [Suspect]
     Active Substance: MIRTAZAPINE
     Indication: DEPRESSION
     Dosage: ALSO TAKEN FROM 26-NOV-1998 TO 30-NOV-1998
     Route: 048
     Dates: start: 19981203, end: 19981203
  33. ZIENAM [Suspect]
     Active Substance: CILASTATIN SODIUM\IMIPENEM
     Indication: INFECTION
     Dosage: ALSO TAKEN FROM 20-NOV-1998 TO 28-NOV-1998
     Route: 042
     Dates: start: 19981205, end: 19990101
  34. AMINOPLASMAL [Concomitant]
     Active Substance: AMINO ACIDS
     Indication: PARENTERAL NUTRITION
     Dosage: INTERMITTENT THERAPY.
     Route: 042
     Dates: start: 19981013
  35. KALIUMCHLORID [Concomitant]
     Active Substance: POTASSIUM CHLORIDE
     Indication: HYPOKALAEMIA
     Dosage: INTERMITTENT THERAPY.
     Route: 042
  36. ACTRAPID [Concomitant]
     Active Substance: INSULIN HUMAN
     Indication: DIABETES MELLITUS
     Route: 042
     Dates: start: 19981115, end: 19981207
  37. FORTUM [Suspect]
     Active Substance: CEFTAZIDIME
     Indication: INFECTION
     Dosage: ALSO TAKEN FROM 11-NOV-1998 TO 20-NOV-1998
     Route: 042
     Dates: start: 19981126, end: 19981205
  38. DIFLUCAN [Suspect]
     Active Substance: FLUCONAZOLE
     Indication: ANTIFUNGAL PROPHYLAXIS
     Route: 042
     Dates: end: 19981119
  39. TOBRAMYCIN. [Suspect]
     Active Substance: TOBRAMYCIN
     Indication: INFECTION
     Dosage: ALSO TAKEN FROM 21-NOV-1998 TO 21-NOV-1998
     Route: 042
     Dates: start: 19981114, end: 19981119
  40. AMBISOME [Suspect]
     Active Substance: AMPHOTERICIN B
     Indication: FUNGAL INFECTION
     Route: 042
     Dates: start: 19981122, end: 19990101
  41. NOVALGIN (METAMIZOLE SODIUM) [Suspect]
     Active Substance: METAMIZOLE SODIUM
     Indication: PAIN
     Dosage: IRREGULAR/UNKNOWN DOSING.,ALSO TAKEN 1 G FROM 11-NOV-1998 TO 21-NOV-1998, AND TO 08-DEC-1998
     Route: 042
     Dates: start: 19981124, end: 19981128
  42. ZOVIRAX [Concomitant]
     Active Substance: ACYCLOVIR
     Indication: PROPHYLAXIS
     Route: 042
     Dates: end: 19981122
  43. INTRALIPID [Concomitant]
     Active Substance: EGG PHOSPHOLIPIDS\GLYCERIN\SOYBEAN OIL
     Indication: PARENTERAL NUTRITION
     Route: 042
  44. INZOLEN [Concomitant]
     Active Substance: MAGNESIUM ASPARTATE\POTASSIUM ASPARTATE
     Indication: ELECTROLYTE SUBSTITUTION THERAPY
     Route: 042
  45. AMPHOTERICIN B/AMPHOTERICIN B/LIPOSOME [Concomitant]
     Indication: FUNGAL INFECTION
     Dosage: LEVEL 1/DAY.
     Route: 042
     Dates: start: 19981117, end: 19981121
  46. ANTRA [Concomitant]
     Active Substance: OMEPRAZOLE
     Indication: PROPHYLAXIS
     Route: 042
     Dates: start: 19981113
  47. AMPHO-MORONAL [Concomitant]
     Active Substance: AMPHOTERICIN B
     Indication: ANTIFUNGAL PROPHYLAXIS
     Dosage: ALSO TAKEN 4 ML FROM 11-NOV-1998 AS ORAL SUSPENSION
     Route: 048
     Dates: end: 19981110
  48. CIPROBAY (CIPROFLOXACIN) [Suspect]
     Active Substance: CIPROFLOXACIN
     Indication: CYSTITIS
     Dosage: INFUSION SOLUTION
     Route: 042
     Dates: start: 19981130, end: 19990101
  49. LASIX [Suspect]
     Active Substance: FUROSEMIDE
     Indication: OEDEMA
     Route: 042
     Dates: start: 19981126, end: 19981126
  50. CYMEVEN IV [Suspect]
     Active Substance: GANCICLOVIR
     Indication: PRODUCT USED FOR UNKNOWN INDICATION
     Route: 042
     Dates: start: 19981127, end: 19990101
  51. AMINOMIX [Concomitant]
     Indication: PARENTERAL NUTRITION
     Dosage: INTERMITTENT THERAPY
     Route: 042
     Dates: end: 19981129
  52. CANDIO-HERMAL [Concomitant]
     Active Substance: NYSTATIN
     Indication: CANDIDA INFECTION
     Route: 061
     Dates: start: 19981204, end: 19981204
  53. TARIVID [Concomitant]
     Active Substance: OFLOXACIN
     Indication: INFECTION
     Route: 042
     Dates: end: 19981110
  54. AMINO ACIDS NOS [Concomitant]
     Active Substance: AMINO ACIDS
     Indication: PARENTERAL NUTRITION
     Dosage: INTERMITTENT THERAPY.
     Route: 042
     Dates: end: 19981128

REACTIONS (2)
  - Toxic epidermal necrolysis [Fatal]
  - Graft versus host disease [Fatal]

NARRATIVE: CASE EVENT DATE: 19981121
